FAERS Safety Report 6211722-4 (Version None)
Quarter: 2009Q2

REPORT INFORMATION
  Report Type: 
  Country: None (occurrence: None)
  Receive Date: 20090602
  Receipt Date: 20090522
  Transmission Date: 20091009
  Serious: Yes (Other)
  Sender: FDA-Public Use
  Company Number: US-PFIZER INC-2009219569

PATIENT

DRUGS (2)
  1. FLUCONAZOLE [Suspect]
     Indication: CRYPTOCOCCOSIS
     Dosage: 1600 MBQ, UNK
  2. AMPHOTERICIN B [Suspect]

REACTIONS (1)
  - PSYCHOTIC DISORDER [None]
